FAERS Safety Report 8117006-1 (Version None)
Quarter: 2012Q1

REPORT INFORMATION
  Report Type: 
  Country: None (occurrence: None)
  Receive Date: 20120131
  Receipt Date: 20120119
  Transmission Date: 20120608
  Serious: Yes (Other)
  Sender: FDA-Public Use
  Company Number: JP-2012-10309

PATIENT
  Age: 62 Year
  Sex: Female

DRUGS (3)
  1. DIART (AZOSEMIDE) TABLET [Concomitant]
  2. LUPRAC (TORASEMIDE) TABLET [Concomitant]
  3. SAMSCA [Suspect]
     Indication: CARDIAC FAILURE CONGESTIVE
     Dosage: 15 MG MILLIGRAM(S), DAILY DOSE, ORAL
     Route: 048
     Dates: start: 20111031, end: 20111102

REACTIONS (1)
  - HYPERNATRAEMIA [None]
